FAERS Safety Report 4945550-4 (Version None)
Quarter: 2006Q1

REPORT INFORMATION
  Report Type: 
  Country: None (occurrence: None)
  Receive Date: 20060316
  Receipt Date: 20051103
  Transmission Date: 20060701
  Serious: Yes (Death, Hospitalization)
  Sender: FDA-Public Use
  Company Number: US-MERCK-0511USA00599

PATIENT
  Age: 51 Year
  Sex: Male
  Weight: 123 kg

DRUGS (4)
  1. VIOXX [Suspect]
     Indication: ARTHRALGIA
     Route: 048
     Dates: start: 20040416, end: 20040429
  2. VIOXX [Suspect]
     Indication: JOINT DISLOCATION
     Route: 048
     Dates: start: 20040416, end: 20040429
  3. ASPIRIN [Concomitant]
     Route: 065
     Dates: start: 20010101, end: 20040101
  4. ADVIL [Concomitant]
     Route: 065
     Dates: start: 20010101, end: 20040101

REACTIONS (7)
  - ARTERIOSCLEROSIS [None]
  - FALL [None]
  - HEPATIC STEATOSIS [None]
  - HYPERTENSIVE HEART DISEASE [None]
  - LOSS OF CONSCIOUSNESS [None]
  - MYOCARDIAL INFARCTION [None]
  - OBESITY [None]
